FAERS Safety Report 19001706 (Version 5)
Quarter: 2022Q3

REPORT INFORMATION
  Report Type: Spontaneous
  Country: US (occurrence: None)
  Receive Date: 20210312
  Receipt Date: 20220907
  Transmission Date: 20221027
  Serious: No
  Sender: FDA-Public Use
  Company Number: US-FARMAPROD-202012-1752

PATIENT
  Age: 59 Year
  Sex: Female

DRUGS (19)
  1. OXERVATE [Suspect]
     Active Substance: CENEGERMIN-BKBJ
     Indication: Neurotrophic keratopathy
     Route: 047
     Dates: start: 20201214, end: 20210211
  2. OXERVATE [Suspect]
     Active Substance: CENEGERMIN-BKBJ
     Indication: Ulcerative keratitis
     Route: 047
     Dates: start: 20220301
  3. OXERVATE [Suspect]
     Active Substance: CENEGERMIN-BKBJ
     Indication: Hypoaesthesia eye
  4. OXYBUTYNIN CHLORIDE [Concomitant]
     Active Substance: OXYBUTYNIN CHLORIDE
  5. BRIMONIDINE TARTRATE [Concomitant]
     Active Substance: BRIMONIDINE TARTRATE
  6. DORZOLAMIDE HYDROCHLORIDE [Concomitant]
     Active Substance: DORZOLAMIDE HYDROCHLORIDE
  7. TIMOLOL MALEATE [Concomitant]
     Active Substance: TIMOLOL MALEATE
  8. OFLOXACIN [Concomitant]
     Active Substance: OFLOXACIN
  9. MELATONIN [Concomitant]
     Active Substance: MELATONIN
  10. NAPROXEN [Concomitant]
     Active Substance: NAPROXEN
     Dosage: 125 MG/5 ML
     Route: 048
  11. MOTRIN IB [Concomitant]
     Active Substance: IBUPROFEN
  12. PREVACID [Concomitant]
     Active Substance: LANSOPRAZOLE
  13. BLACK COHOSH [Concomitant]
     Active Substance: BLACK COHOSH
  14. VITAMIN D2 [Concomitant]
     Active Substance: ERGOCALCIFEROL
  15. CELEXA [Concomitant]
     Active Substance: CITALOPRAM HYDROBROMIDE
  16. BACLOFEN [Concomitant]
     Active Substance: BACLOFEN
  17. GABAPENTIN [Concomitant]
     Active Substance: GABAPENTIN
  18. TECFIDERA [Concomitant]
     Active Substance: DIMETHYL FUMARATE
  19. FAMOTIDINE [Concomitant]
     Active Substance: FAMOTIDINE

REACTIONS (1)
  - Eye pain [Not Recovered/Not Resolved]

NARRATIVE: CASE EVENT DATE: 20201201
